FAERS Safety Report 12907822 (Version 1)
Quarter: 2016Q4

REPORT INFORMATION
  Report Type: Spontaneous
  Country: US (occurrence: US)
  Receive Date: 20161102
  Receipt Date: 20161102
  Transmission Date: 20170207
  Serious: No
  Sender: FDA-Public Use
  Company Number: None

PATIENT
  Age: 8 Year
  Sex: Female
  Weight: 32.85 kg

DRUGS (3)
  1. ZYRTEC [Concomitant]
     Active Substance: CETIRIZINE HYDROCHLORIDE
  2. ADVAIR HFA [Concomitant]
     Active Substance: FLUTICASONE PROPIONATE\SALMETEROL XINAFOATE
  3. CEFDINIR 300 MG [Suspect]
     Active Substance: CEFDINIR
     Indication: SINUSITIS
     Route: 048
     Dates: start: 20161101, end: 20161102

REACTIONS (5)
  - Swelling face [None]
  - Intentional product use issue [None]
  - Abdominal pain [None]
  - Diarrhoea [None]
  - Wrong technique in product usage process [None]

NARRATIVE: CASE EVENT DATE: 20161101
